FAERS Safety Report 15492731 (Version 1)
Quarter: 2018Q4

REPORT INFORMATION
  Report Type: Spontaneous
  Country: US (occurrence: US)
  Receive Date: 20181012
  Receipt Date: 20181012
  Transmission Date: 20190205
  Serious: Yes (Death)
  Sender: FDA-Public Use
  Company Number: None

PATIENT
  Age: 85 Year
  Sex: Male

DRUGS (7)
  1. IMATINIB. [Concomitant]
     Active Substance: IMATINIB MESYLATE
  2. LASIX [Concomitant]
     Active Substance: FUROSEMIDE
  3. GLEEVEC [Suspect]
     Active Substance: IMATINIB MESYLATE
     Indication: ACUTE LYMPHOCYTIC LEUKAEMIA
     Route: 048
     Dates: start: 20180605
  4. METOPROLOL. [Concomitant]
     Active Substance: METOPROLOL
  5. ACYCLOVIR. [Concomitant]
     Active Substance: ACYCLOVIR
  6. DIGOXIN. [Concomitant]
     Active Substance: DIGOXIN
  7. GLEEVEC [Suspect]
     Active Substance: IMATINIB MESYLATE
     Indication: ACUTE LYMPHOCYTIC LEUKAEMIA
     Route: 048
     Dates: start: 20180605

REACTIONS (1)
  - Death [None]

NARRATIVE: CASE EVENT DATE: 20181011
